FAERS Safety Report 22212133 (Version 1)
Quarter: 2023Q2

REPORT INFORMATION
  Report Type: Spontaneous
  Country: CN (occurrence: CN)
  Receive Date: 20230414
  Receipt Date: 20230414
  Transmission Date: 20230721
  Serious: Yes (Other)
  Sender: FDA-Public Use
  Company Number: CN-JNJFOC-20230417457

PATIENT
  Age: 75 Year
  Sex: Male

DRUGS (1)
  1. DARZALEX [Suspect]
     Active Substance: DARATUMUMAB
     Indication: Plasma cell myeloma
     Dosage: 4TH DOSE,  400MG/20ML/VIAL (2 VIALS IN TOTAL)
     Route: 042
     Dates: start: 20230401

REACTIONS (1)
  - Gastrointestinal haemorrhage [Unknown]
